FAERS Safety Report 10567260 (Version 2)
Quarter: 2014Q4

REPORT INFORMATION
  Report Type: Not Available
  Country: US (occurrence: US)
  Receive Date: 20141106
  Receipt Date: 20141106
  Transmission Date: 20150529
  Serious: No
  Sender: FDA-Public Use
  Company Number: US-LUPIN PHARMACEUTICALS INC.-E2B_00001269

PATIENT
  Age: 71 Year
  Sex: Male
  Weight: 77.18 kg

DRUGS (3)
  1. LISINOPRIL TABLETS USP 20 MG [Suspect]
     Active Substance: LISINOPRIL
     Indication: HYPERTENSION
     Dates: start: 201211
  2. RED YEAST RICE COQ10 [Concomitant]
     Indication: HYPERCHOLESTEROLAEMIA
     Dates: start: 2006
  3. AMBERTOSE [Concomitant]
     Indication: NUTRITIONAL SUPPLEMENTATION
     Dates: start: 2003

REACTIONS (1)
  - Pruritus [Not Recovered/Not Resolved]

NARRATIVE: CASE EVENT DATE: 201211
